FAERS Safety Report 8953308 (Version 1)
Quarter: 2012Q4

REPORT INFORMATION
  Report Type: 
  Country: US (occurrence: US)
  Receive Date: 20121206
  Receipt Date: 20121206
  Transmission Date: 20130627
  Serious: Yes (Other)
  Sender: FDA-Public Use
  Company Number: US-JNJFOC-20121112054

PATIENT

DRUGS (21)
  1. RISPERIDONE [Suspect]
     Indication: SCHIZOPHRENIA
     Route: 065
  2. CONCERTA [Suspect]
     Indication: ATTENTION DEFICIT/HYPERACTIVITY DISORDER
  3. ADDERALL XR [Suspect]
     Indication: ATTENTION DEFICIT/HYPERACTIVITY DISORDER
     Route: 065
  4. DAYTRANA [Suspect]
     Indication: ATTENTION DEFICIT/HYPERACTIVITY DISORDER
     Route: 065
  5. VYVANSE [Suspect]
     Indication: ATTENTION DEFICIT/HYPERACTIVITY DISORDER
     Route: 065
  6. INTUNIV [Suspect]
     Indication: ATTENTION DEFICIT/HYPERACTIVITY DISORDER
     Route: 065
  7. STRATTERA [Suspect]
     Indication: ATTENTION DEFICIT/HYPERACTIVITY DISORDER
     Route: 065
  8. ABILIFY [Suspect]
     Indication: SCHIZOPHRENIA
     Route: 065
  9. ZYPREXA [Suspect]
     Indication: BIPOLAR I DISORDER
     Route: 065
  10. ZYPREXA [Suspect]
     Indication: SCHIZOPHRENIA
     Route: 065
  11. SEROQUEL [Suspect]
     Indication: SCHIZOPHRENIA
     Route: 065
  12. ANAFRANIL [Suspect]
     Indication: OBSESSIVE-COMPULSIVE DISORDER
     Route: 065
  13. ANAFRANIL [Suspect]
     Indication: MAJOR DEPRESSION
     Route: 065
  14. LEXAPRO [Suspect]
     Indication: OBSESSIVE-COMPULSIVE DISORDER
     Route: 065
  15. LEXAPRO [Suspect]
     Indication: MAJOR DEPRESSION
     Route: 065
  16. PROZAC [Suspect]
     Indication: OBSESSIVE-COMPULSIVE DISORDER
     Route: 065
  17. PROZAC [Suspect]
     Indication: MAJOR DEPRESSION
     Route: 065
  18. LUVOX [Suspect]
     Indication: OBSESSIVE-COMPULSIVE DISORDER
     Route: 065
  19. LUVOX [Suspect]
     Indication: MAJOR DEPRESSION
     Route: 065
  20. ZOLOFT [Suspect]
     Indication: OBSESSIVE-COMPULSIVE DISORDER
     Route: 065
  21. ZOLOFT [Suspect]
     Indication: MAJOR DEPRESSION
     Route: 065

REACTIONS (11)
  - Extrapyramidal disorder [Unknown]
  - Decreased appetite [Unknown]
  - Nausea [Unknown]
  - Dizziness [Unknown]
  - Insomnia [Unknown]
  - Weight decreased [Unknown]
  - Increased appetite [Unknown]
  - Vision blurred [Unknown]
  - Hyperhidrosis [Unknown]
  - Dyspepsia [Unknown]
  - Somnolence [Unknown]
